FAERS Safety Report 16175767 (Version 1)
Quarter: 2019Q2

REPORT INFORMATION
  Report Type: Spontaneous
  Country: US (occurrence: US)
  Receive Date: 20190409
  Receipt Date: 20190409
  Transmission Date: 20190711
  Serious: No
  Sender: FDA-Public Use
  Company Number: US-ARALEZ PHARMACEUTICALS R+D INC.-2019-ARA-001042

PATIENT
  Sex: Female

DRUGS (2)
  1. METOPROLOL SUCCINATE. [Suspect]
     Active Substance: METOPROLOL SUCCINATE
     Indication: ARRHYTHMIA
     Dosage: UNK
  2. TOPROL XL [Suspect]
     Active Substance: METOPROLOL SUCCINATE
     Indication: ARRHYTHMIA

REACTIONS (3)
  - Product substitution issue [Unknown]
  - Off label use [Unknown]
  - Drug hypersensitivity [Unknown]
